FAERS Safety Report 7521429-9 (Version None)
Quarter: 2011Q2

REPORT INFORMATION
  Report Type: 
  Country: None (occurrence: None)
  Receive Date: 20110603
  Receipt Date: 20110519
  Transmission Date: 20111010
  Serious: Yes (Hospitalization)
  Sender: FDA-Public Use
  Company Number: US-JNJFOC-20110509808

PATIENT
  Sex: Female

DRUGS (7)
  1. MESALAMINE [Concomitant]
     Indication: CROHN'S DISEASE
  2. ASACOL [Concomitant]
     Indication: CROHN'S DISEASE
  3. INFLIXIMAB, RECOMBINANT [Suspect]
     Indication: CROHN'S DISEASE
     Route: 042
  4. PREDNISONE [Concomitant]
  5. BETA BLOCKERS, NOS [Concomitant]
  6. METHOTREXATE [Concomitant]
     Indication: RHEUMATOID ARTHRITIS
  7. METHOTREXATE [Concomitant]
     Indication: CROHN'S DISEASE

REACTIONS (2)
  - ACUTE RESPIRATORY DISTRESS SYNDROME [None]
  - SEPSIS [None]
